FAERS Safety Report 4463065-7 (Version None)
Quarter: 2004Q3

REPORT INFORMATION
  Report Type: 
  Country: None (occurrence: None)
  Receive Date: 20040930
  Receipt Date: 20040920
  Transmission Date: 20050211
  Serious: Yes (Hospitalization)
  Sender: FDA-Public Use
  Company Number: PHBS2004BR12497

PATIENT
  Age: 47 Year
  Sex: Male

DRUGS (1)
  1. TEGRETOL [Suspect]
     Indication: CONVULSION
     Dosage: 200 MG, TID
     Route: 048
     Dates: start: 20040626, end: 20040915

REACTIONS (4)
  - CARDIAC ARREST [None]
  - CEREBROVASCULAR OPERATION [None]
  - CONVULSION [None]
  - FALL [None]
